FAERS Safety Report 19710127 (Version 2)
Quarter: 2021Q3

REPORT INFORMATION
  Report Type: Other
  Country: US (occurrence: US)
  Receive Date: 20210817
  Receipt Date: 20210903
  Transmission Date: 20211014
  Serious: Yes (Hospitalization, Other)
  Sender: FDA-Public Use
  Company Number: US-INTERCEPT-PM2021002402

PATIENT
  Sex: Female

DRUGS (2)
  1. OCALIVA [Suspect]
     Active Substance: OBETICHOLIC ACID
     Indication: PRIMARY BILIARY CHOLANGITIS
     Dosage: 5 MILLIGRAM, QD
     Route: 048
     Dates: start: 2017
  2. OCALIVA [Suspect]
     Active Substance: OBETICHOLIC ACID
     Dosage: 10 MILLIGRAM, QD
     Route: 048

REACTIONS (7)
  - Blood alkaline phosphatase abnormal [Unknown]
  - Pneumonia [Unknown]
  - Fall [Unknown]
  - Hypoaesthesia [Unknown]
  - Hip fracture [Unknown]
  - Alanine aminotransferase abnormal [Unknown]
  - Spinal operation [Unknown]

NARRATIVE: CASE EVENT DATE: 2017
